FAERS Safety Report 7586770-2 (Version None)
Quarter: 2011Q3

REPORT INFORMATION
  Report Type: 
  Country: None (occurrence: None)
  Receive Date: 20110701
  Receipt Date: 20110615
  Transmission Date: 20111222
  Serious: No
  Sender: FDA-Public Use
  Company Number: US-B.I. PHARMACEUTICALS,INC./RIDGEFIELD-2010-BP-06222BP

PATIENT
  Sex: Male

DRUGS (12)
  1. PROVENTIL [Concomitant]
  2. ALBUTEROL SULFATE AUTOHALER [Concomitant]
     Indication: CHRONIC OBSTRUCTIVE PULMONARY DISEASE
  3. LASIX [Concomitant]
     Dosage: 20 MG
  4. PROAIR HFA [Concomitant]
  5. OXYGEN [Concomitant]
     Indication: CHRONIC OBSTRUCTIVE PULMONARY DISEASE
  6. PREDNISONE [Concomitant]
     Indication: CHRONIC OBSTRUCTIVE PULMONARY DISEASE
     Dosage: 20 MG
  7. FLOVENT [Concomitant]
  8. TORSEMIDE [Concomitant]
  9. SPIRIVA [Suspect]
     Indication: CHRONIC OBSTRUCTIVE PULMONARY DISEASE
     Dosage: 18 MCG
     Route: 055
     Dates: start: 20050101
  10. VALIUM [Concomitant]
     Indication: BACK PAIN
     Dosage: 30 MG
  11. METHADONE HCL [Concomitant]
     Indication: BACK PAIN
     Dosage: 80 MG
  12. ADVAIR DISKUS 100/50 [Concomitant]
     Indication: CHRONIC OBSTRUCTIVE PULMONARY DISEASE

REACTIONS (7)
  - COUGH [None]
  - SWELLING FACE [None]
  - FLUID RETENTION [None]
  - OEDEMA PERIPHERAL [None]
  - OBSTRUCTIVE AIRWAYS DISORDER [None]
  - INCREASED BRONCHIAL SECRETION [None]
  - DYSPNOEA [None]
